FAERS Safety Report 17941136 (Version 1)
Quarter: 2020Q2

REPORT INFORMATION
  Report Type: Spontaneous
  Country: US (occurrence: US)
  Receive Date: 20200625
  Receipt Date: 20200625
  Transmission Date: 20200714
  Serious: No
  Sender: FDA-Public Use
  Company Number: US-SA-2020SA155789

PATIENT

DRUGS (1)
  1. DUPIXENT [Suspect]
     Active Substance: DUPILUMAB
     Indication: POLYP
     Dosage: 300 MG
     Dates: start: 20200228, end: 20200228

REACTIONS (5)
  - Condition aggravated [Unknown]
  - Asthma [Unknown]
  - Product use in unapproved indication [Unknown]
  - Erythema [Unknown]
  - Skin reaction [Unknown]

NARRATIVE: CASE EVENT DATE: 2020
